FAERS Safety Report 18313117 (Version 1)
Quarter: 2020Q3

REPORT INFORMATION
  Report Type: Spontaneous
  Country: FR (occurrence: FR)
  Receive Date: 20200925
  Receipt Date: 20200925
  Transmission Date: 20201103
  Serious: Yes (Hospitalization)
  Sender: FDA-Public Use
  Company Number: FR-PFIZER INC-2020367480

PATIENT
  Age: 77 Year
  Sex: Male
  Weight: 70 kg

DRUGS (3)
  1. TAZOCILLINE [Suspect]
     Active Substance: PIPERACILLIN SODIUM\TAZOBACTAM SODIUM
     Indication: PYREXIA
     Dosage: 16 G, DAILY
     Route: 042
     Dates: start: 20200513
  2. METRONIDAZOLE. [Suspect]
     Active Substance: METRONIDAZOLE
     Indication: PYREXIA
     Dosage: UNK (3MU500MG 3/DAY)
     Route: 042
     Dates: start: 20200512
  3. SPIRAMYCINE [Suspect]
     Active Substance: SPIRAMYCIN
     Indication: PYREXIA
     Dosage: UNK
     Route: 042
     Dates: start: 20200512

REACTIONS (1)
  - Encephalopathy [Recovered/Resolved]

NARRATIVE: CASE EVENT DATE: 20200516
